FAERS Safety Report 6015956-3 (Version None)
Quarter: 2008Q4

REPORT INFORMATION
  Report Type: 
  Country: None (occurrence: None)
  Receive Date: 20081222
  Receipt Date: 20081215
  Transmission Date: 20090506
  Serious: Yes (Other)
  Sender: FDA-Public Use
  Company Number: IT-ALLERGAN-0815362US

PATIENT
  Sex: Female

DRUGS (4)
  1. ALPHAGAN [Suspect]
     Indication: OPEN ANGLE GLAUCOMA
     Dosage: 2 GTT, QD
     Route: 047
     Dates: start: 20081112, end: 20081113
  2. ALPHAGAN [Suspect]
     Route: 047
     Dates: start: 20081117
  3. SYSTEN [Concomitant]
     Dosage: TRANSDERMIC FORM
  4. PROGEFFIK [Concomitant]
     Dosage: 200 MG, UNK

REACTIONS (5)
  - DRY MOUTH [None]
  - DYSARTHRIA [None]
  - HYPOTENSION [None]
  - SEDATION [None]
  - SLEEP ATTACKS [None]
